FAERS Safety Report 21053215 (Version 2)
Quarter: 2022Q3

REPORT INFORMATION
  Report Type: Spontaneous
  Country: CN (occurrence: CN)
  Receive Date: 20220707
  Receipt Date: 20220713
  Transmission Date: 20221027
  Serious: Yes (Hospitalization)
  Sender: FDA-Public Use
  Company Number: CN-NOVARTISPH-NVSC2022CN152067

PATIENT
  Age: 65 Year
  Sex: Female
  Weight: 56 kg

DRUGS (1)
  1. SACUBITRIL\VALSARTAN [Suspect]
     Active Substance: SACUBITRIL\VALSARTAN
     Indication: Hypertension
     Dosage: 50 MG, BID
     Route: 048
     Dates: start: 20220603, end: 20220610

REACTIONS (1)
  - Blood creatinine increased [Unknown]

NARRATIVE: CASE EVENT DATE: 20220610
